FAERS Safety Report 25425649 (Version 1)
Quarter: 2025Q2

REPORT INFORMATION
  Report Type: Spontaneous
  Country: JP (occurrence: JP)
  Receive Date: 20250611
  Receipt Date: 20250611
  Transmission Date: 20250717
  Serious: Yes (Other)
  Sender: BRISTOL-MYERS SQUIBB COMPANY
  Company Number: JP-BRISTOL-MYERS SQUIBB COMPANY-2025-034284

PATIENT
  Age: 76 Year
  Sex: Male

DRUGS (4)
  1. YERVOY [Suspect]
     Active Substance: IPILIMUMAB
     Indication: Oesophageal carcinoma
     Route: 041
     Dates: start: 20230814, end: 20230814
  2. YERVOY [Suspect]
     Active Substance: IPILIMUMAB
     Route: 041
     Dates: end: 20240510
  3. OPDIVO [Suspect]
     Active Substance: NIVOLUMAB
     Indication: Oesophageal carcinoma
     Route: 041
     Dates: start: 20230814, end: 20230814
  4. OPDIVO [Suspect]
     Active Substance: NIVOLUMAB
     Route: 041
     Dates: end: 20240510

REACTIONS (1)
  - Immune-mediated enterocolitis [Recovering/Resolving]

NARRATIVE: CASE EVENT DATE: 20240510
